FAERS Safety Report 18886061 (Version 1)
Quarter: 2021Q1

REPORT INFORMATION
  Report Type: Spontaneous
  Country: US (occurrence: US)
  Receive Date: 20210212
  Receipt Date: 20210212
  Transmission Date: 20210420
  Serious: No
  Sender: FDA-Public Use
  Company Number: None

PATIENT
  Age: 78 Year
  Sex: Female
  Weight: 48.15 kg

DRUGS (16)
  1. ELIQUIS [Concomitant]
     Active Substance: APIXABAN
  2. PREDNISONE 10MG [Concomitant]
     Active Substance: PREDNISONE
  3. HYDROXYZINE [Concomitant]
     Active Substance: HYDROXYZINE HYDROCHLORIDE
  4. FLUCONAZOLE 200MG [Concomitant]
     Active Substance: FLUCONAZOLE
  5. MORPHINE 15MG [Concomitant]
     Active Substance: MORPHINE
  6. SPIRIVA HANDIHALER 18MCG [Concomitant]
  7. FOLIC ACID 1MG [Concomitant]
     Active Substance: FOLIC ACID
  8. FUROSEMIDE 20MG [Concomitant]
     Active Substance: FUROSEMIDE
  9. LEVAQUIN [Concomitant]
     Active Substance: LEVOFLOXACIN
  10. KEPPRA 250MG, 500MG [Concomitant]
  11. METOPROLOL SUCCINATE ER 50MG [Concomitant]
  12. SENNA PLUS 50?8.6MG [Concomitant]
  13. VITAMIN B12 ER 1000MCG [Concomitant]
  14. PROAIR HFA [Concomitant]
     Active Substance: ALBUTEROL SULFATE
  15. CYCLOPHOSPHAMIDE. [Suspect]
     Active Substance: CYCLOPHOSPHAMIDE
     Indication: LEUKAEMIA
     Route: 048
     Dates: start: 20210114, end: 20210212
  16. DIGOX 125MCG [Concomitant]

REACTIONS (2)
  - COVID-19 [None]
  - Stomatitis [None]

NARRATIVE: CASE EVENT DATE: 20210212
